FAERS Safety Report 5716114-X (Version None)
Quarter: 2008Q2

REPORT INFORMATION
  Report Type: 
  Country: None (occurrence: None)
  Receive Date: 20080423
  Receipt Date: 20080423
  Transmission Date: 20081010
  Serious: Yes (Life-Threatening, Other)
  Sender: FDA-Public Use
  Company Number: None

PATIENT
  Age: 39 Year
  Sex: Female
  Weight: 68.0396 kg

DRUGS (2)
  1. VENTOLIN [Suspect]
     Indication: ASTHMA
     Dosage: 1-2 A DAY
     Dates: start: 20071201, end: 20071230
  2. PROVENTIL [Suspect]

REACTIONS (2)
  - DYSGEUSIA [None]
  - DYSPNOEA [None]
